FAERS Safety Report 6055981-X (Version None)
Quarter: 2009Q1

REPORT INFORMATION
  Report Type: 
  Country: None (occurrence: None)
  Receive Date: 20090128
  Receipt Date: 20090128
  Transmission Date: 20090719
  Serious: Yes (Death, Life-Threatening, Hospitalization)
  Sender: FDA-Public Use
  Company Number: DE-B.I. PHARMACEUTICALS,INC./RIDGEFIELD-2009-DE-00436DE

PATIENT
  Sex: Male
  Weight: 63 kg

DRUGS (9)
  1. SIFROL 0,18 MG [Suspect]
     Indication: PARKINSON'S DISEASE
     Dosage: .54MG
     Route: 048
     Dates: start: 20081214, end: 20081219
  2. PAROXITIN 20 MG [Concomitant]
     Dosage: 20MG
     Route: 048
  3. MADOPAR DEPOT [Concomitant]
     Dosage: 1ANZ
     Route: 048
  4. LEVODOP NEURAX PHARM [Concomitant]
     Dosage: 1ANZ
     Route: 048
  5. ERGENYL [Concomitant]
  6. CHRONO 300 [Concomitant]
  7. AMDIPIN [Concomitant]
  8. RAMIPRIL [Concomitant]
  9. FUROSEMID [Concomitant]

REACTIONS (3)
  - COMA [None]
  - DEATH [None]
  - DISTURBANCE IN ATTENTION [None]
